FAERS Safety Report 6915478-9 (Version None)
Quarter: 2010Q3

REPORT INFORMATION
  Report Type: 
  Country: None (occurrence: None)
  Receive Date: 20100809
  Receipt Date: 20090311
  Transmission Date: 20110219
  Serious: No
  Sender: FDA-Public Use
  Company Number: US-ABBOTT-09P-163-0562062-00

PATIENT
  Sex: Male
  Weight: 87.622 kg

DRUGS (9)
  1. DEPAKOTE ER [Suspect]
     Indication: ABNORMAL BEHAVIOUR
     Route: 048
  2. FOLIPRO [Concomitant]
     Indication: BLOOD FOLATE DECREASED
     Route: 048
     Dates: start: 20090108
  3. VITAMINS AND MINERALS [Concomitant]
     Indication: MEDICAL DIET
     Dosage: UNKNOWN
     Route: 048
  4. FLUVISTATIN [Concomitant]
     Indication: CARDIOVASCULAR EVENT PROPHYLAXIS
     Dosage: UNKNOWN
     Route: 048
  5. PRO-EPA [Concomitant]
     Indication: MEDICAL DIET
     Dosage: UNKNOWN
     Route: 048
  6. LAMOTRIGINE [Concomitant]
     Indication: AFFECTIVE DISORDER
     Route: 048
  7. MAGOXIDE [Concomitant]
     Indication: GASTROOESOPHAGEAL REFLUX DISEASE
     Route: 048
  8. PYRIDOXINE HCL [Concomitant]
     Indication: VITAMIN SUPPLEMENTATION
     Route: 048
  9. THIORIDAZINE HCL [Concomitant]
     Indication: PSYCHOTIC DISORDER
     Route: 048

REACTIONS (1)
  - AGITATION [None]
